FAERS Safety Report 10586872 (Version 1)
Quarter: 2014Q4

REPORT INFORMATION
  Report Type: Spontaneous
  Country: US (occurrence: None)
  Receive Date: 20141114
  Receipt Date: 20141114
  Transmission Date: 20150529
  Serious: No
  Sender: FDA-Public Use
  Company Number: None

PATIENT
  Age: 52 Year
  Sex: Female
  Weight: 82.56 kg

DRUGS (1)
  1. ESCITALOPRAM [Suspect]
     Active Substance: ESCITALOPRAM OXALATE
     Indication: GENERALISED ANXIETY DISORDER
     Dosage: 1.5 PILLS, ONCE DAILY, TAKEN BY MOUTH?
     Route: 048
     Dates: start: 20141110, end: 20141113

REACTIONS (6)
  - Product physical issue [None]
  - Malaise [None]
  - Tremor [None]
  - Depressed mood [None]
  - Listless [None]
  - Product quality issue [None]

NARRATIVE: CASE EVENT DATE: 20141110
